FAERS Safety Report 6079773-0 (Version None)
Quarter: 2009Q1

REPORT INFORMATION
  Report Type: 
  Country: None (occurrence: None)
  Receive Date: 20090211
  Receipt Date: 20090209
  Transmission Date: 20090719
  Serious: Yes (Death)
  Sender: FDA-Public Use
  Company Number: 0153FLUORO0XALI09

PATIENT
  Age: 71 Year
  Sex: Male

DRUGS (7)
  1. FLUOROURACIL INJ [Suspect]
     Indication: OESOPHAGEAL CARCINOMA
     Dosage: 4MG/M2, 96HR, INTRAVENOUS
     Route: 042
     Dates: start: 20090116, end: 20090120
  2. OXALIPLATIN [Suspect]
     Indication: OESOPHAGEAL CARCINOMA
     Dosage: 130MG/M2, 2HR, IV
     Route: 042
     Dates: start: 20090116, end: 20090116
  3. FLUDROCORTISONE [Concomitant]
  4. HYDROCORTISONE [Concomitant]
  5. LACTULOSE [Concomitant]
  6. METOCLOPRAMIDE [Concomitant]
  7. OMEPRAZOLE [Concomitant]

REACTIONS (1)
  - GASTROOESOPHAGEAL REFLUX DISEASE [None]
